FAERS Safety Report 19142418 (Version 8)
Quarter: 2021Q3

REPORT INFORMATION
  Report Type: Report from Study
  Country: None (occurrence: FR)
  Receive Date: 20210416
  Receipt Date: 20210706
  Transmission Date: 20211014
  Serious: Yes (Hospitalization, Other)
  Sender: FDA-Public Use
  Company Number: FR-ABBVIE-21K-056-3850482-00

PATIENT
  Age: 68 Year
  Sex: Female

DRUGS (7)
  1. DUODOPA [Suspect]
     Active Substance: CARBIDOPA\LEVODOPA
     Dosage: MD:5ML; CONTINUOUS FLOW RATE DURING THE DAY:8.8ML/H FROM 10AM TO 9PM; EXTRA DOSE: 2ML
     Route: 050
     Dates: start: 2021
  2. DAFALGAN [Concomitant]
     Active Substance: ACETAMINOPHEN
     Indication: HAEMATOMA
  3. DUODOPA [Suspect]
     Active Substance: CARBIDOPA\LEVODOPA
     Dosage: CONTINOUS FLOW RATE INCREASED BY 0.3ML/H
     Route: 050
     Dates: start: 2021, end: 2021
  4. DUODOPA [Suspect]
     Active Substance: CARBIDOPA\LEVODOPA
     Dosage: CONTINUOUS FLOW RATE 8.5 ML/H
     Route: 050
     Dates: start: 2021, end: 2021
  5. DAFALGAN [Concomitant]
     Active Substance: ACETAMINOPHEN
     Indication: PAIN
  6. SINEMET [Concomitant]
     Active Substance: CARBIDOPA\LEVODOPA
     Indication: PRODUCT USED FOR UNKNOWN INDICATION
     Route: 048
  7. DUODOPA [Suspect]
     Active Substance: CARBIDOPA\LEVODOPA
     Indication: PARKINSON^S DISEASE
     Route: 050
     Dates: start: 202103, end: 2021

REACTIONS (16)
  - Gait disturbance [Unknown]
  - Pain [Not Recovered/Not Resolved]
  - Agitation [Not Recovered/Not Resolved]
  - Self esteem decreased [Not Recovered/Not Resolved]
  - Anxiety [Unknown]
  - Haematoma [Not Recovered/Not Resolved]
  - Freezing phenomenon [Unknown]
  - Foot deformity [Unknown]
  - Fear [Not Recovered/Not Resolved]
  - Device issue [Unknown]
  - Balance disorder [Not Recovered/Not Resolved]
  - Jaw fracture [Not Recovered/Not Resolved]
  - Fall [Not Recovered/Not Resolved]
  - Dyskinesia [Unknown]
  - Memory impairment [Unknown]
  - Device dislocation [Not Recovered/Not Resolved]

NARRATIVE: CASE EVENT DATE: 2021
